FAERS Safety Report 18604895 (Version 5)
Quarter: 2021Q3

REPORT INFORMATION
  Report Type: Spontaneous
  Country: FR (occurrence: FR)
  Receive Date: 20201211
  Receipt Date: 20210907
  Transmission Date: 20211014
  Serious: Yes (Hospitalization, Congenital Anomaly, Other)
  Sender: FDA-Public Use
  Company Number: FR-MYLANLABS-2020M1099944

PATIENT
  Sex: Female
  Weight: 3.36 kg

DRUGS (3)
  1. DEPAKINE CHRONO [Suspect]
     Active Substance: VALPROATE SODIUM
     Indication: EPILEPSY
     Dosage: 1500 MILLIGRAM, QD
     Route: 064
     Dates: start: 20090407, end: 20100104
  2. ETHINYLESTRADIOL/LEVONORGESTREL [Suspect]
     Active Substance: ETHINYL ESTRADIOL\LEVONORGESTREL
     Indication: CONTRACEPTION
     Dosage: UNK
     Route: 064
  3. FOLIC ACID. [Concomitant]
     Active Substance: FOLIC ACID
     Dosage: UNK
     Route: 064

REACTIONS (27)
  - Sandifer^s syndrome [Unknown]
  - Knee deformity [Unknown]
  - Frustration tolerance decreased [Unknown]
  - Gastrooesophageal reflux disease [Unknown]
  - Abnormal sleep-related event [Unknown]
  - Clonus [Unknown]
  - Nasopharyngitis [Unknown]
  - Childhood asthma [Unknown]
  - Intentional self-injury [Unknown]
  - Neonatal respiratory acidosis [Unknown]
  - Language disorder [Unknown]
  - Behaviour disorder [Unknown]
  - Prognathism [Unknown]
  - Foetal exposure during pregnancy [Recovered/Resolved]
  - Movement disorder [Unknown]
  - Educational problem [Unknown]
  - Electroencephalogram abnormal [Unknown]
  - Malaise [Unknown]
  - Dysmorphism [Unknown]
  - Hypertonia [Unknown]
  - Upper respiratory tract infection [Unknown]
  - Aggression [Unknown]
  - Cyanosis [Unknown]
  - Affect lability [Unknown]
  - Disturbance in attention [Unknown]
  - Dyslexia [Unknown]
  - Anger [Unknown]

NARRATIVE: CASE EVENT DATE: 20100104
